FAERS Safety Report 15680695 (Version 1)
Quarter: 2018Q4

REPORT INFORMATION
  Report Type: Spontaneous
  Country: US (occurrence: US)
  Receive Date: 20181120
  Receipt Date: 20181120
  Transmission Date: 20190205
  Serious: Yes (Other)
  Sender: FDA-Public Use
  Company Number: None

PATIENT
  Age: 74 Year
  Sex: Female
  Weight: 77.4 kg

DRUGS (4)
  1. IMATINIB. [Suspect]
     Active Substance: IMATINIB MESYLATE
     Route: 048
     Dates: start: 20180411, end: 20181120
  2. CLARITIN [Concomitant]
     Active Substance: LORATADINE
  3. CYMBALTA [Concomitant]
     Active Substance: DULOXETINE HYDROCHLORIDE
  4. SIMVASTATIN. [Concomitant]
     Active Substance: SIMVASTATIN

REACTIONS (5)
  - Fluid retention [None]
  - Diarrhoea [None]
  - Mood altered [None]
  - Photosensitivity reaction [None]
  - Musculoskeletal disorder [None]

NARRATIVE: CASE EVENT DATE: 20181120
